FAERS Safety Report 8282992-6 (Version None)
Quarter: 2012Q2

REPORT INFORMATION
  Report Type: 
  Country: None (occurrence: None)
  Receive Date: 20120413
  Receipt Date: 20120404
  Transmission Date: 20120825
  Serious: Yes (Hospitalization)
  Sender: FDA-Public Use
  Company Number: DE-VERTEX PHARMACEUTICALS INC.-000000000000000377

PATIENT
  Age: 62 Year
  Sex: Male

DRUGS (6)
  1. HYDROCHLOROTHIAZIDE [Concomitant]
     Dosage: DOSAGE FORM: UNSPECIFIED
     Route: 065
  2. INSULIN [Concomitant]
     Dosage: DOSAGE FORM: UNSPECIFIED
     Route: 065
  3. RAMIPRIL [Concomitant]
     Dosage: DOSAGE FORM: UNSPECIFIED
     Route: 065
  4. FUROSEMIDE [Concomitant]
     Dosage: DOSAGE FORM: UNSPECIFIED
     Route: 065
  5. INCIVO (TELAPREVIR) [Suspect]
     Indication: PRODUCT USED FOR UNKNOWN INDICATION
     Dosage: DOSAGE FORM: TABLET
     Route: 048
  6. ALL OTHER PRODUCTS [Concomitant]
     Route: 065

REACTIONS (2)
  - TELANGIECTASIA [None]
  - RECTAL HAEMORRHAGE [None]
